FAERS Safety Report 4831252-1 (Version None)
Quarter: 2005Q4

REPORT INFORMATION
  Report Type: 
  Country: None (occurrence: None)
  Receive Date: 20051114
  Receipt Date: 20051028
  Transmission Date: 20060501
  Serious: Yes (Death, Life-Threatening, Hospitalization)
  Sender: FDA-Public Use
  Company Number: GBT051002241

PATIENT
  Age: 73 Year
  Sex: Male
  Weight: 86 kg

DRUGS (4)
  1. GEMCITABINE HYDROCHLORIDE-IV (GEMCITABINE) [Suspect]
     Indication: NON-SMALL CELL LUNG CANCER
     Dosage: 2394 MG
     Dates: start: 20050304, end: 20050527
  2. BLINDED THERAPY [Suspect]
     Indication: NON-SMALL CELL LUNG CANCER
     Dosage: 150 MG
     Dates: start: 20050819, end: 20050916
  3. ATENOLOL W/NIFEDEPINE [Concomitant]
  4. ASPIRIN [Concomitant]

REACTIONS (7)
  - ARRHYTHMIA [None]
  - ATRIOVENTRICULAR BLOCK FIRST DEGREE [None]
  - FIBROSIS [None]
  - LOWER RESPIRATORY TRACT INFECTION [None]
  - PULMONARY EMBOLISM [None]
  - RADIATION INJURY [None]
  - RADIATION PNEUMONITIS [None]
